FAERS Safety Report 5352177-1 (Version None)
Quarter: 2007Q2

REPORT INFORMATION
  Report Type: 
  Country: None (occurrence: None)
  Receive Date: 20070611
  Receipt Date: 20070604
  Transmission Date: 20071010
  Serious: Yes (Other)
  Sender: FDA-Public Use
  Company Number: BR-JNJFOC-20070600199

PATIENT
  Sex: Female
  Weight: 32 kg

DRUGS (18)
  1. TMC114 [Suspect]
     Indication: HIV INFECTION
     Dosage: TEMPORARY STOP
     Route: 048
  2. RITONAVIR [Suspect]
     Indication: HIV INFECTION
     Route: 048
  3. OMEPRAZOLE [Concomitant]
     Indication: GASTRITIS PROPHYLAXIS
     Route: 048
  4. SULFAMETHOXAZOLE [Concomitant]
     Indication: PNEUMOCYSTIS JIROVECI PNEUMONIA
     Route: 048
  5. TRIMETHOPRIM [Concomitant]
     Indication: PNEUMOCYSTIS JIROVECI PNEUMONIA
     Route: 048
  6. VITAMIN CAP [Concomitant]
     Indication: MEDICAL DIET
     Route: 048
  7. AZITHROMYCIN [Concomitant]
     Indication: BRONCHIECTASIS
     Route: 048
  8. FOLIC ACID [Concomitant]
     Indication: MEDICAL DIET
     Route: 048
  9. DIPIRONE [Concomitant]
     Indication: PYREXIA
     Route: 048
  10. REFRESH [Concomitant]
     Indication: CONJUNCTIVITIS
     Route: 061
  11. HERPES NOSODIO [Concomitant]
     Indication: HERPES VIRUS INFECTION
     Route: 048
  12. NISTATIN [Concomitant]
     Route: 048
  13. CEFADROXIL [Concomitant]
     Route: 048
  14. RANITIDINE [Concomitant]
     Indication: GASTRITIS
     Route: 048
  15. SODIUM DICLOFENAC [Concomitant]
     Route: 048
  16. CIPROFLOXACIN [Concomitant]
     Route: 048
  17. UREA [Concomitant]
     Indication: XERODERMA
     Dosage: STARTED PRE-TRIAL
     Route: 061
  18. ERTAPENEM [Concomitant]
     Route: 030

REACTIONS (2)
  - ALANINE AMINOTRANSFERASE INCREASED [None]
  - BLOOD ALKALINE PHOSPHATASE INCREASED [None]
